FAERS Safety Report 24713597 (Version 1)
Quarter: 2024Q4

REPORT INFORMATION
  Report Type: Spontaneous
  Country: US (occurrence: US)
  Receive Date: 20241209
  Receipt Date: 20241209
  Transmission Date: 20250115
  Serious: No
  Sender: SANOFI AVENTIS
  Company Number: US-SA-2024SA363183

PATIENT
  Age: 12 Year
  Sex: Male
  Weight: 46.36 kg

DRUGS (3)
  1. DUPIXENT [Suspect]
     Active Substance: DUPILUMAB
     Indication: Illness
     Dosage: 300 MG, QW
     Route: 058
  2. PREVACID [Concomitant]
     Active Substance: LANSOPRAZOLE
  3. EPIPEN [Concomitant]
     Active Substance: EPINEPHRINE

REACTIONS (2)
  - Pharyngitis streptococcal [Unknown]
  - Odynophagia [Unknown]

NARRATIVE: CASE EVENT DATE: 20240701
